FAERS Safety Report 6417236-0 (Version None)
Quarter: 2009Q4

REPORT INFORMATION
  Report Type: 
  Country: None (occurrence: None)
  Receive Date: 20091027
  Receipt Date: 20091027
  Transmission Date: 20100525
  Serious: Yes (Hospitalization)
  Sender: FDA-Public Use
  Company Number: None

PATIENT
  Age: 73 Year
  Sex: Male
  Weight: 79.3 kg

DRUGS (10)
  1. DECITABINE [Suspect]
     Indication: ACUTE MYELOID LEUKAEMIA
     Dosage: 20MG/M2, D1-5, IV
     Route: 042
     Dates: start: 20090921, end: 20090925
  2. DECITABINE [Suspect]
     Indication: ACUTE MYELOID LEUKAEMIA
     Dosage: 20MG/M2, D1-5, IV
     Route: 042
     Dates: start: 20091019
  3. ARSENIC TRIOXIDE [Suspect]
     Indication: ACUTE MYELOID LEUKAEMIA
     Dosage: 0.2 MG/KG, D1-5, QW, IV
     Route: 042
     Dates: start: 20090921, end: 20090925
  4. ARSENIC TRIOXIDE [Suspect]
     Indication: ACUTE MYELOID LEUKAEMIA
     Dosage: 0.2 MG/KG, D1-5, QW, IV
     Route: 042
     Dates: start: 20090928
  5. ARSENIC TRIOXIDE [Suspect]
     Indication: ACUTE MYELOID LEUKAEMIA
     Dosage: 0.2 MG/KG, D1-5, QW, IV
     Route: 042
     Dates: start: 20091005
  6. ARSENIC TRIOXIDE [Suspect]
     Indication: ACUTE MYELOID LEUKAEMIA
     Dosage: 0.2 MG/KG, D1-5, QW, IV
     Route: 042
     Dates: start: 20091012
  7. ASCORBIC ACID [Suspect]
     Dosage: 1000 MG, D1-5, QW, IV
     Route: 042
     Dates: start: 20090921, end: 20090925
  8. ASCORBIC ACID [Suspect]
     Dosage: 1000 MG, D1-5, QW, IV
     Route: 042
     Dates: start: 20090928
  9. ASCORBIC ACID [Suspect]
     Dosage: 1000 MG, D1-5, QW, IV
     Route: 042
     Dates: start: 20091005
  10. ASCORBIC ACID [Suspect]
     Dosage: 1000 MG, D1-5, QW, IV
     Route: 042
     Dates: start: 20091012

REACTIONS (3)
  - CHILLS [None]
  - HEADACHE [None]
  - PYREXIA [None]
